FAERS Safety Report 21411528 (Version 5)
Quarter: 2023Q2

REPORT INFORMATION
  Report Type: Spontaneous
  Country: JP (occurrence: JP)
  Receive Date: 20221005
  Receipt Date: 20230405
  Transmission Date: 20230721
  Serious: Yes (Death, Life-Threatening, Hospitalization, Other)
  Sender: FDA-Public Use
  Company Number: JP-AMGEN-JPNSP2022170748

PATIENT
  Age: 8 Year
  Sex: Male
  Weight: 26 kg

DRUGS (14)
  1. BLINCYTO [Suspect]
     Active Substance: BLINATUMOMAB
     Indication: B precursor type acute leukaemia
     Dosage: 5 MICROGRAM/ M^2 (24-HOUR CONTINUOUS INTRAVENOUS INFUSION)
     Route: 040
     Dates: start: 20210727, end: 20210803
  2. BLINCYTO [Suspect]
     Active Substance: BLINATUMOMAB
     Dosage: 15 MICROGRAM/M^2 (24-HOUR CONTINUOUS INTRAVENOUS INFUSION), QD
     Route: 040
     Dates: start: 20210803, end: 20211003
  3. DEXARTAN [Concomitant]
     Indication: Prophylaxis
     Dosage: 5 MILLIGRAM/M^2, BID
     Route: 065
     Dates: start: 20210727, end: 20210727
  4. DEXARTAN [Concomitant]
     Dosage: 5 MILLIGRAM/M^2, BID
     Route: 065
     Dates: start: 20210727, end: 20210727
  5. METHOTREXATE [Concomitant]
     Active Substance: METHOTREXATE
     Indication: Prophylaxis
     Dosage: 12 MILLIGRAM, TID
     Route: 029
     Dates: start: 20210727, end: 20210907
  6. CYTARABINE [Concomitant]
     Active Substance: CYTARABINE
     Dosage: 30 MILLIGRAM, TID
     Route: 029
     Dates: start: 20210727, end: 20210907
  7. CORTEF [Concomitant]
     Active Substance: HYDROCORTISONE
     Indication: Prophylaxis
     Dosage: 25 MILLIGRAM, TID
     Route: 029
     Dates: start: 20210727, end: 20210907
  8. SEVOFLURANE [Concomitant]
     Active Substance: SEVOFLURANE
     Indication: Anaesthesia
     Dosage: UNK
     Route: 029
     Dates: start: 20210727
  9. SEVOFLURANE [Concomitant]
     Active Substance: SEVOFLURANE
     Dosage: UNK
     Route: 029
     Dates: start: 20210824
  10. SEVOFLURANE [Concomitant]
     Active Substance: SEVOFLURANE
     Dosage: UNK
     Route: 029
     Dates: start: 20210907
  11. THIAMYLAL [Concomitant]
     Active Substance: THIAMYLAL
     Indication: Anaesthesia
     Dosage: UNK
     Route: 065
     Dates: start: 20210727
  12. THIAMYLAL [Concomitant]
     Active Substance: THIAMYLAL
     Dosage: UNK
     Route: 065
     Dates: start: 20210824
  13. THIAMYLAL [Concomitant]
     Active Substance: THIAMYLAL
     Dosage: UNK
     Route: 065
     Dates: start: 20210907
  14. AZACITIDINE [Concomitant]
     Active Substance: AZACITIDINE
     Indication: Product used for unknown indication
     Dosage: UNK
     Route: 065
     Dates: start: 20220603

REACTIONS (2)
  - Transformation to acute myeloid leukaemia [Fatal]
  - Haemophagocytic lymphohistiocytosis [Fatal]

NARRATIVE: CASE EVENT DATE: 20220214
